FAERS Safety Report 11887927 (Version 1)
Quarter: 2016Q1

REPORT INFORMATION
  Report Type: Spontaneous
  Country: US (occurrence: None)
  Receive Date: 20160104
  Receipt Date: 20160104
  Transmission Date: 20160526
  Serious: No
  Sender: FDA-Public Use
  Company Number: None

PATIENT
  Age: 90 Year
  Sex: Male
  Weight: 73.3 kg

DRUGS (1)
  1. CALCITONIN [Suspect]
     Active Substance: CALCITONIN
     Dosage: 1 PUFF9S) EVERY DAY
     Dates: start: 20150220, end: 20150803

REACTIONS (1)
  - Nightmare [None]

NARRATIVE: CASE EVENT DATE: 20151029
